FAERS Safety Report 5424906-X (Version None)
Quarter: 2007Q3

REPORT INFORMATION
  Report Type: 
  Country: None (occurrence: None)
  Receive Date: 20070824
  Receipt Date: 20070813
  Transmission Date: 20080115
  Serious: Yes (Other)
  Sender: FDA-Public Use
  Company Number: US-ELI_LILLY_AND_COMPANY-US200708002715

PATIENT
  Age: 51 Year
  Sex: Female

DRUGS (1)
  1. FORTEO [Suspect]
     Indication: OSTEOPOROSIS

REACTIONS (10)
  - DENTAL CARIES [None]
  - ENDODONTIC PROCEDURE [None]
  - FALL [None]
  - FEAR [None]
  - MUSCULAR WEAKNESS [None]
  - NEUROPATHY [None]
  - PALPITATIONS [None]
  - PELVIC FRACTURE [None]
  - TOOTH ABSCESS [None]
  - TOOTH DISORDER [None]
